FAERS Safety Report 8540068-4 (Version None)
Quarter: 2012Q3

REPORT INFORMATION
  Report Type: 
  Country: None (occurrence: None)
  Receive Date: 20120726
  Receipt Date: 20070611
  Transmission Date: 20120928
  Serious: Yes (Other)
  Sender: FDA-Public Use
  Company Number: CO-PFIZER INC-2012180160

PATIENT
  Age: 57 Year
  Sex: Female

DRUGS (6)
  1. GLIBENCLAMIDE [Concomitant]
     Dosage: 5 MG, 1X/DAY
  2. METOPROLOL TARTRATE [Concomitant]
     Dosage: 100 MG, 1X/DAY
  3. LIPITOR [Suspect]
     Dosage: 10 MG, 1X/DAY
  4. CIPROFLOXACIN HYDROCHLORIDE [Concomitant]
     Dosage: 500 MG, 2X/DAY
  5. ACCURETIC [Suspect]
     Dosage: 20/12.5 MG, 1X/DAY
  6. ACETYLSALICYLIC ACID [Concomitant]
     Dosage: 100 MG, 1X/DAY

REACTIONS (5)
  - HYPERTENSION [None]
  - PAIN IN EXTREMITY [None]
  - TYPE V HYPERLIPIDAEMIA [None]
  - URINARY TRACT INFECTION [None]
  - VISION BLURRED [None]
